FAERS Safety Report 8085633-6 (Version None)
Quarter: 2012Q1

REPORT INFORMATION
  Report Type: 
  Country: None (occurrence: None)
  Receive Date: 20120128
  Receipt Date: 20110401
  Transmission Date: 20120608
  Serious: No
  Sender: FDA-Public Use
  Company Number: US-ABBOTT-11P-163-0716269-00

PATIENT
  Sex: Female
  Weight: 74.91 kg

DRUGS (8)
  1. VITAMIN B-12 [Concomitant]
     Indication: PRODUCT USED FOR UNKNOWN INDICATION
  2. CEFUROXIME [Suspect]
     Indication: SINUSITIS
     Dosage: # 2 ANTIBIOTIC
     Route: 048
     Dates: start: 20110219
  3. LEVAQUIN [Suspect]
     Indication: SINUSITIS
     Dosage: #3 ANTIBIOTIC
     Route: 048
     Dates: start: 20110301, end: 20110301
  4. FLUCONAZOLE [Suspect]
     Indication: FUNGAL INFECTION
     Dosage: 1XDOSE
     Route: 048
     Dates: start: 20110328, end: 20110328
  5. HUMIRA [Suspect]
     Route: 058
     Dates: start: 20090301, end: 20100901
  6. HUMIRA [Suspect]
     Indication: CROHN'S DISEASE
     Route: 058
  7. FLUCONAZOLE [Suspect]
     Dosage: EXPECTED COURSE OF 7 DAYS
     Route: 048
     Dates: start: 20110330
  8. WELCHOL [Concomitant]
     Indication: DIARRHOEA
     Route: 048

REACTIONS (8)
  - DRUG INEFFECTIVE [None]
  - SINUSITIS [None]
  - FUNGAL INFECTION [None]
  - COUGH [None]
  - VIRAL INFECTION [None]
  - EAR DISCOMFORT [None]
  - NASAL CONGESTION [None]
  - OROPHARYNGEAL PAIN [None]
